FAERS Safety Report 18922430 (Version 2)
Quarter: 2021Q1

REPORT INFORMATION
  Report Type: Spontaneous
  Country: US (occurrence: US)
  Receive Date: 20210222
  Receipt Date: 20210301
  Transmission Date: 20210420
  Serious: Yes (Other)
  Sender: FDA-Public Use
  Company Number: ALC2021US001268

PATIENT
  Sex: Male

DRUGS (1)
  1. GENTEAL TEARS SEVERE [Suspect]
     Active Substance: HYPROMELLOSE 2910 (4000 MPA.S)
     Indication: PRODUCT USED FOR UNKNOWN INDICATION
     Dosage: UNK
     Route: 065

REACTIONS (3)
  - Eye infection bacterial [Not Recovered/Not Resolved]
  - Product contamination physical [Not Recovered/Not Resolved]
  - Product colour issue [Not Recovered/Not Resolved]
